FAERS Safety Report 6216494-5 (Version None)
Quarter: 2009Q2

REPORT INFORMATION
  Report Type: 
  Country: None (occurrence: None)
  Receive Date: 20090605
  Receipt Date: 20090528
  Transmission Date: 20091009
  Serious: Yes (Other)
  Sender: FDA-Public Use
  Company Number: FR-MERCK-0905FRA00095

PATIENT
  Age: 57 Year
  Sex: Male

DRUGS (6)
  1. PRIMAXIN [Suspect]
     Indication: INFECTION PROPHYLAXIS
     Route: 041
     Dates: start: 20090411, end: 20090419
  2. PYRIDOXINE HYDROCHLORIDE [Concomitant]
     Route: 065
  3. AMMONIUM MOLYBDATE AND CHROMIC CHLORIDE AND COBALT (UNSPECIFIED) AND C [Concomitant]
     Route: 065
  4. PANTOPRAZOLE SODIUM [Concomitant]
     Route: 065
  5. POTASSIUM (UNSPECIFIED) [Concomitant]
     Route: 065
  6. IRINOTECAN HYDROCHLORIDE AND OCTREOTIDE [Concomitant]
     Route: 065

REACTIONS (1)
  - PARTIAL SEIZURES WITH SECONDARY GENERALISATION [None]
